FAERS Safety Report 14554684 (Version 1)
Quarter: 2018Q1

REPORT INFORMATION
  Report Type: Spontaneous
  Country: US (occurrence: US)
  Receive Date: 20180220
  Receipt Date: 20180220
  Transmission Date: 20180509
  Serious: No
  Sender: FDA-Public Use
  Company Number: US-GILEAD-2018-0316065

PATIENT
  Age: 61 Year
  Sex: Female
  Weight: 68.93 kg

DRUGS (7)
  1. HARVONI [Suspect]
     Active Substance: LEDIPASVIR\SOFOSBUVIR
     Indication: HEPATITIS C
     Dosage: 1 DF, UNK
     Route: 048
     Dates: start: 20171112
  2. GABAPENTIN. [Concomitant]
     Active Substance: GABAPENTIN
  3. DICLOFENAC [Concomitant]
     Active Substance: DICLOFENAC
  4. RANITIDINE. [Concomitant]
     Active Substance: RANITIDINE
  5. TOPIRAMATE. [Concomitant]
     Active Substance: TOPIRAMATE
  6. ASA [Concomitant]
     Active Substance: ASPIRIN
  7. VITAMIN D                          /00107901/ [Concomitant]
     Active Substance: ERGOCALCIFEROL

REACTIONS (1)
  - Alopecia [Not Recovered/Not Resolved]
